FAERS Safety Report 11778337 (Version 1)
Quarter: 2015Q4

REPORT INFORMATION
  Report Type: Spontaneous
  Country: US (occurrence: US)
  Receive Date: 20151125
  Receipt Date: 20151125
  Transmission Date: 20160304
  Serious: No
  Sender: FDA-Public Use
  Company Number: US-BAYER-2015-471990

PATIENT
  Age: 68 Year
  Sex: Female
  Weight: 66.67 kg

DRUGS (5)
  1. RANITIDINE [Concomitant]
     Active Substance: RANITIDINE\RANITIDINE HYDROCHLORIDE
  2. IBUPROFEN. [Concomitant]
     Active Substance: IBUPROFEN
  3. MIRALAX [Suspect]
     Active Substance: POLYETHYLENE GLYCOL 3350
     Indication: CONSTIPATION
  4. TYLENOL [Concomitant]
     Active Substance: ACETAMINOPHEN
  5. BUSPAR [Concomitant]
     Active Substance: BUSPIRONE HYDROCHLORIDE

REACTIONS (6)
  - Feeling hot [None]
  - Abdominal distension [None]
  - Abdominal distension [Not Recovered/Not Resolved]
  - Dyspepsia [Not Recovered/Not Resolved]
  - Product use issue [None]
  - Feeling hot [Not Recovered/Not Resolved]
